FAERS Safety Report 18086839 (Version 5)
Quarter: 2020Q4

REPORT INFORMATION
  Report Type: Spontaneous
  Country: US (occurrence: US)
  Receive Date: 20200729
  Receipt Date: 20201223
  Transmission Date: 20210113
  Serious: No
  Sender: FDA-Public Use
  Company Number: US-PFIZER INC-2020002080

PATIENT
  Age: 73 Year
  Sex: Male

DRUGS (5)
  1. LYRICA [Suspect]
     Active Substance: PREGABALIN
     Indication: NEUROPATHY PERIPHERAL
     Dosage: 375 MG, DAILY (2 CAPS IN THE AM, 3 CAPS IN THE PM)
     Route: 048
  2. LYRICA [Suspect]
     Active Substance: PREGABALIN
     Dosage: 25 MG, AS NEEDED
  3. LYRICA [Suspect]
     Active Substance: PREGABALIN
     Dosage: 375 MG, DAILY (TAKE 1 CAP IN THE MORNING, 1 CAP AT LUNCH, 1 CAP AT DINNER, AND 2 CAPS AT BEDTIME)
     Route: 048
  4. LYRICA [Suspect]
     Active Substance: PREGABALIN
     Dosage: 75 MG, AS NEEDED
  5. LYRICA [Suspect]
     Active Substance: PREGABALIN
     Dosage: 300 MG, DAILY (1 EVERY MORNING, 1 AT LUNCH AND 2 EVERY EVENING)
     Route: 048

REACTIONS (2)
  - Confusional state [Unknown]
  - Off label use [Unknown]
